FAERS Safety Report 10991278 (Version 4)
Quarter: 2015Q2

REPORT INFORMATION
  Report Type: Spontaneous
  Country: ZA (occurrence: ZA)
  Receive Date: 20150406
  Receipt Date: 20150506
  Transmission Date: 20150821
  Serious: Yes (Hospitalization, Other)
  Sender: FDA-Public Use
  Company Number: ZA-BAYER-2015-009829

PATIENT
  Age: 37 Year
  Sex: Female

DRUGS (2)
  1. MIRENA [Suspect]
     Active Substance: LEVONORGESTREL
     Dosage: 20 MCG/24HR, CONT
     Route: 015
     Dates: start: 20131127, end: 20150122
  2. MIRENA [Suspect]
     Active Substance: LEVONORGESTREL
     Dosage: 20 MCG/24HR, CONT
     Route: 015
     Dates: start: 20130628, end: 20150122

REACTIONS (17)
  - Cyst rupture [None]
  - Uterine inflammation [Recovering/Resolving]
  - Complication of device removal [None]
  - Genital haemorrhage [Recovering/Resolving]
  - Uterine haemorrhage [Recovering/Resolving]
  - Discomfort [None]
  - Device difficult to use [None]
  - Pain [Recovering/Resolving]
  - Ovarian cyst [Recovered/Resolved]
  - Uterine perforation [None]
  - Uterine perforation [Recovering/Resolving]
  - Haemorrhagic ovarian cyst [None]
  - Device breakage [None]
  - Uterine scar [None]
  - Device misuse [None]
  - Discomfort [Recovering/Resolving]
  - Pain [None]

NARRATIVE: CASE EVENT DATE: 201311
